FAERS Safety Report 18345222 (Version 1)
Quarter: 2020Q4

REPORT INFORMATION
  Report Type: Spontaneous
  Country: US (occurrence: US)
  Receive Date: 20201005
  Receipt Date: 20201005
  Transmission Date: 20210114
  Serious: No
  Sender: FDA-Public Use
  Company Number: US-ALLERGAN-2014692US

PATIENT
  Sex: Female

DRUGS (3)
  1. MOTRIN [Concomitant]
     Active Substance: IBUPROFEN
  2. LINZESS [Suspect]
     Active Substance: LINACLOTIDE
     Indication: IRRITABLE BOWEL SYNDROME
     Dosage: 72 ?G
     Dates: start: 2018
  3. ASPIRIN. [Concomitant]
     Active Substance: ASPIRIN

REACTIONS (1)
  - Diarrhoea [Not Recovered/Not Resolved]
